FAERS Safety Report 17847109 (Version 1)
Quarter: 2020Q2

REPORT INFORMATION
  Report Type: Spontaneous
  Country: US (occurrence: US)
  Receive Date: 20200601
  Receipt Date: 20200601
  Transmission Date: 20200714
  Serious: No
  Sender: FDA-Public Use
  Company Number: US-AKRON, INC.-2085321

PATIENT
  Sex: Male

DRUGS (1)
  1. DORZOLAMIDE HYDROCHLORIDE AND TIMOLOL MALEATE PF [Suspect]
     Active Substance: DORZOLAMIDE HYDROCHLORIDE\TIMOLOL MALEATE
     Route: 047
     Dates: start: 201812

REACTIONS (3)
  - Arthralgia [Unknown]
  - Fatigue [Unknown]
  - Renal failure [Unknown]
